FAERS Safety Report 14538793 (Version 1)
Quarter: 2018Q1

REPORT INFORMATION
  Report Type: Spontaneous
  Country: CN (occurrence: CN)
  Receive Date: 20180216
  Receipt Date: 20180216
  Transmission Date: 20180509
  Serious: Yes (Hospitalization, Other)
  Sender: FDA-Public Use
  Company Number: CN-VISTAPHARM, INC.-VER201712-001436

PATIENT
  Age: 22 Year
  Sex: Male

DRUGS (1)
  1. VALPROIC ACID. [Suspect]
     Active Substance: VALPROIC ACID
     Indication: PRODUCT USED FOR UNKNOWN INDICATION

REACTIONS (4)
  - Overdose [Recovering/Resolving]
  - Subarachnoid haemorrhage [Recovering/Resolving]
  - Toxicity to various agents [Recovering/Resolving]
  - Brain oedema [Recovering/Resolving]
